FAERS Safety Report 5726927-6 (Version None)
Quarter: 2008Q2

REPORT INFORMATION
  Report Type: 
  Country: None (occurrence: None)
  Receive Date: 20080502
  Receipt Date: 20080420
  Transmission Date: 20081010
  Serious: Yes (Other)
  Sender: FDA-Public Use
  Company Number: US-PFIZER INC-2008036882

PATIENT
  Sex: Male

DRUGS (7)
  1. CHANTIX [Suspect]
     Indication: SMOKING CESSATION THERAPY
  2. ALCOHOL [Suspect]
  3. VALIUM [Concomitant]
     Indication: SLEEP DISORDER
  4. VALIUM [Concomitant]
     Indication: NIGHTMARE
  5. OXYCONTIN [Concomitant]
  6. ROXICODONE [Concomitant]
  7. DILAUDID [Concomitant]

REACTIONS (6)
  - DYSGEUSIA [None]
  - EUPHORIC MOOD [None]
  - FEELING ABNORMAL [None]
  - PALPITATIONS [None]
  - PARANOIA [None]
  - PRODUCTIVE COUGH [None]
